FAERS Safety Report 20371756 (Version 2)
Quarter: 2022Q1

REPORT INFORMATION
  Report Type: Report from Study
  Country: DK (occurrence: DK)
  Receive Date: 20220124
  Receipt Date: 20220127
  Transmission Date: 20220423
  Serious: Yes (Hospitalization)
  Sender: FDA-Public Use
  Company Number: DK-NOVARTISPH-NVSC2022DK011886

PATIENT
  Age: 58 Year
  Sex: Male
  Weight: 99.8 kg

DRUGS (2)
  1. TRAMETINIB [Suspect]
     Active Substance: TRAMETINIB
     Indication: Drug interaction
     Dosage: 1 MG, QD
     Route: 048
  2. DABRAFENIB [Suspect]
     Active Substance: DABRAFENIB
     Indication: Drug interaction
     Dosage: 75 MG, BID
     Route: 048

REACTIONS (1)
  - Pneumonia haemophilus [Not Recovered/Not Resolved]

NARRATIVE: CASE EVENT DATE: 20220115
